FAERS Safety Report 4487581-7 (Version None)
Quarter: 2004Q4

REPORT INFORMATION
  Report Type: 
  Country: None (occurrence: None)
  Receive Date: 20041027
  Receipt Date: 20041027
  Transmission Date: 20050328
  Serious: Yes (Hospitalization)
  Sender: FDA-Public Use
  Company Number: None

PATIENT
  Age: 87 Year
  Sex: Male

DRUGS (8)
  1. CLOPIDOGREL   75MG   SANOFI-SYNTHELABO [Suspect]
     Indication: MYOCARDIAL INFARCTION
     Dosage: 75MG   DAILY   ORAL
     Route: 048
     Dates: start: 20040611, end: 20040619
  2. CELECOXIB   200MG   SEARLE [Suspect]
     Indication: ARTHRITIS
     Dosage: 200MG   DAILY   ORAL
     Route: 048
     Dates: start: 20040101, end: 20040619
  3. ASPIRIN [Concomitant]
  4. ERYTHROPOETIN [Concomitant]
  5. FUROSEMIDE [Concomitant]
  6. NITRO OINTMENT [Concomitant]
  7. RISPERIDONE [Concomitant]
  8. SERTRALINE HCL [Concomitant]

REACTIONS (3)
  - DUODENAL ULCER [None]
  - GASTROINTESTINAL HAEMORRHAGE [None]
  - HYPOTENSION [None]
